FAERS Safety Report 19376589 (Version 1)
Quarter: 2021Q2

REPORT INFORMATION
  Report Type: Spontaneous
  Country: US (occurrence: US)
  Receive Date: 20210604
  Receipt Date: 20210604
  Transmission Date: 20210717
  Serious: Yes (Hospitalization)
  Sender: FDA-Public Use
  Company Number: US-MYLANLABS-2021M1032372

PATIENT
  Age: 55 Year
  Sex: Male

DRUGS (9)
  1. METHADONE [Suspect]
     Active Substance: METHADONE HYDROCHLORIDE
     Indication: PROCEDURAL PAIN
     Dosage: 70 MILLIGRAM, QD GRADUALLY INCREASED THE DOSE
     Route: 065
  2. METHADONE [Suspect]
     Active Substance: METHADONE HYDROCHLORIDE
     Dosage: 20 MILLIGRAM IN THE MORNING
     Route: 065
  3. METHADONE [Suspect]
     Active Substance: METHADONE HYDROCHLORIDE
     Indication: RADIATION NEUROPATHY
     Dosage: STARTING DOSE NOT STATED
     Route: 065
  4. OXYMORPHONE [Suspect]
     Active Substance: OXYMORPHONE
     Indication: RADIATION NEUROPATHY
     Dosage: STARTING DOSE NOT STATED
     Route: 065
  5. BUPRENORPHINE. [Suspect]
     Active Substance: BUPRENORPHINE
     Indication: RADIATION NEUROPATHY
     Dosage: 8 MILLIGRAM
     Route: 065
  6. OXYMORPHONE [Suspect]
     Active Substance: OXYMORPHONE
     Dosage: 40 MILLIGRAM IN THE MORNING PRIOR..
     Route: 065
  7. BUPRENORPHINE. [Suspect]
     Active Substance: BUPRENORPHINE
     Indication: PROCEDURAL PAIN
  8. METHADONE [Suspect]
     Active Substance: METHADONE HYDROCHLORIDE
     Dosage: 30 MILLIGRAM IN THE NOON
     Route: 065
  9. OXYMORPHONE [Suspect]
     Active Substance: OXYMORPHONE
     Indication: PROCEDURAL PAIN
     Dosage: 200 MILLIGRAM, QD GRADUALLY INCREASED THE DOSE
     Route: 065

REACTIONS (2)
  - Product prescribing error [Unknown]
  - Drug withdrawal syndrome [Recovering/Resolving]
